FAERS Safety Report 4978074-9 (Version None)
Quarter: 2006Q2

REPORT INFORMATION
  Report Type: 
  Country: None (occurrence: None)
  Receive Date: 20060417
  Receipt Date: 20060406
  Transmission Date: 20061013
  Serious: Yes (Other)
  Sender: FDA-Public Use
  Company Number: 2006048675

PATIENT
  Age: 3 Year
  Sex: Male

DRUGS (1)
  1. BENADRYL [Suspect]
     Indication: SEDATION
     Dosage: 1 TEASPOON PLUS MIXED IN BOTTLE AT NIGHT, ORAL
     Route: 048

REACTIONS (2)
  - DEPRESSED LEVEL OF CONSCIOUSNESS [None]
  - INTENTIONAL DRUG MISUSE [None]
